FAERS Safety Report 9302311 (Version 1)
Quarter: 2013Q2

REPORT INFORMATION
  Report Type: Spontaneous
  Country: US (occurrence: US)
  Receive Date: 20130522
  Receipt Date: 20130522
  Transmission Date: 20140414
  Serious: No
  Sender: FDA-Public Use
  Company Number: US-009507513-1305USA011257

PATIENT
  Age: 8 Year
  Sex: 0

DRUGS (2)
  1. SINGULAIR [Suspect]
     Indication: HYPERSENSITIVITY
     Dosage: 4 MG, QD
     Route: 048
     Dates: start: 201105, end: 201304
  2. SINGULAIR [Suspect]
     Dosage: 8 MG, QD
     Route: 048
     Dates: start: 201304

REACTIONS (2)
  - Overdose [Unknown]
  - No adverse event [Unknown]
